FAERS Safety Report 20950720 (Version 1)
Quarter: 2022Q2

REPORT INFORMATION
  Report Type: Spontaneous
  Country: US (occurrence: None)
  Receive Date: 20220609
  Receipt Date: 20220609
  Transmission Date: 20220721
  Serious: Yes (Other)
  Sender: FDA-Public Use
  Company Number: None

PATIENT
  Age: 66 Year
  Sex: Female
  Weight: 120.6 kg

DRUGS (1)
  1. ARMODAFINIL [Suspect]
     Active Substance: ARMODAFINIL
     Dosage: OTHER QUANTITY : 1 TABLET(S);?
     Route: 048
     Dates: start: 20220609

REACTIONS (7)
  - Product substitution issue [None]
  - Dry mouth [None]
  - Tremor [None]
  - Dyspnoea [None]
  - Tachycardia [None]
  - Heart rate increased [None]
  - Wrong technique in product usage process [None]

NARRATIVE: CASE EVENT DATE: 20220609
